FAERS Safety Report 5719971-6 (Version None)
Quarter: 2008Q2

REPORT INFORMATION
  Report Type: 
  Country: None (occurrence: None)
  Receive Date: 20080428
  Receipt Date: 20070327
  Transmission Date: 20081010
  Serious: No
  Sender: FDA-Public Use
  Company Number: US-AMGEN-US212155

PATIENT
  Sex: Female
  Weight: 103 kg

DRUGS (17)
  1. SENSIPAR [Suspect]
     Indication: HYPERPARATHYROIDISM SECONDARY
     Route: 048
     Dates: start: 20060424
  2. VENOFER [Concomitant]
     Route: 042
     Dates: start: 20070301
  3. HECTORAL [Concomitant]
     Route: 048
     Dates: start: 20070118
  4. VITAMIN D [Concomitant]
     Route: 048
     Dates: start: 20070118
  5. EPOGEN [Concomitant]
     Route: 058
  6. HUMALOG [Concomitant]
     Route: 058
     Dates: start: 20061117
  7. NOVOLIN 70/30 [Concomitant]
     Route: 058
     Dates: start: 20061117
  8. INSULIN [Concomitant]
     Route: 065
     Dates: start: 20061117
  9. RENAGEL [Concomitant]
     Route: 048
     Dates: start: 20061117
  10. RENALTABS [Concomitant]
     Route: 048
     Dates: start: 20061117
  11. ASPIRIN [Concomitant]
     Route: 048
     Dates: start: 20061117
  12. LIPITOR [Concomitant]
     Route: 048
     Dates: start: 20061117
  13. K-TAB [Concomitant]
     Route: 048
     Dates: start: 20061117
  14. BACTROBAN [Concomitant]
     Route: 065
     Dates: start: 20061117
  15. LEVOTHROID [Concomitant]
     Route: 048
     Dates: start: 20061117
  16. TYLENOL [Concomitant]
     Route: 048
     Dates: start: 20061117
  17. HUMALOG [Concomitant]
     Route: 058
     Dates: start: 20060920

REACTIONS (1)
  - NAIL DISORDER [None]
